FAERS Safety Report 8459368-1 (Version None)
Quarter: 2012Q2

REPORT INFORMATION
  Report Type: 
  Country: None (occurrence: None)
  Receive Date: 20120622
  Receipt Date: 20120614
  Transmission Date: 20120825
  Serious: Yes (Hospitalization)
  Sender: FDA-Public Use
  Company Number: GB-JNJFOC-20120607908

PATIENT
  Sex: Male
  Weight: 116 kg

DRUGS (15)
  1. ASPIRIN [Concomitant]
     Route: 065
     Dates: start: 20030327
  2. DOVOBET [Concomitant]
     Route: 065
     Dates: start: 20101102
  3. NITROGLYCERIN [Concomitant]
     Route: 065
     Dates: start: 20070625
  4. ADIZEM [Concomitant]
     Route: 065
     Dates: start: 20060919
  5. ATORVASTATIN CALCIUM [Concomitant]
     Route: 065
     Dates: start: 20030327
  6. METFORMIN HCL [Concomitant]
     Route: 065
     Dates: start: 20070601
  7. RAMIPRIL [Concomitant]
     Route: 065
     Dates: start: 20030327
  8. TRIMOVATE [Concomitant]
     Dates: start: 20100917
  9. RANITIDINE [Concomitant]
     Route: 065
     Dates: start: 20101102
  10. STELARA [Suspect]
     Indication: PSORIASIS
     Route: 058
     Dates: start: 20101105
  11. CLOPIDOGREL [Concomitant]
     Route: 065
     Dates: start: 20030327
  12. EZETIMIBE [Concomitant]
     Route: 065
     Dates: start: 20090522
  13. DIPROSALIC [Concomitant]
     Dates: start: 20100917
  14. GLICLAZIDE [Concomitant]
     Route: 065
     Dates: start: 20070601
  15. EMOLLIENTS [Concomitant]
     Dates: start: 20100917

REACTIONS (1)
  - MYOCARDIAL INFARCTION [None]
